FAERS Safety Report 20016257 (Version 1)
Quarter: 2021Q4

REPORT INFORMATION
  Report Type: Spontaneous
  Country: US (occurrence: None)
  Receive Date: 20211103
  Receipt Date: 20211103
  Transmission Date: 20220303
  Serious: No
  Sender: FDA-Public Use
  Company Number: None

PATIENT
  Age: 63 Year
  Sex: Male
  Weight: 110.3 kg

DRUGS (2)
  1. BEVACIZUMAB-AWWB [Suspect]
     Active Substance: BEVACIZUMAB-AWWB
     Indication: Hepatocellular carcinoma
     Dosage: OTHER FREQUENCY : Q 3 WEEKS;?
     Route: 040
     Dates: start: 20211102
  2. Atezolimumab [Concomitant]
     Dates: start: 20211012

REACTIONS (8)
  - Chest pain [None]
  - Pain [None]
  - Pain in jaw [None]
  - Head discomfort [None]
  - Chest discomfort [None]
  - Back pain [None]
  - Eye pain [None]
  - Headache [None]

NARRATIVE: CASE EVENT DATE: 20211102
